FAERS Safety Report 10710777 (Version 4)
Quarter: 2015Q2

REPORT INFORMATION
  Report Type: Spontaneous
  Country: JP (occurrence: JP)
  Receive Date: 20150114
  Receipt Date: 20150415
  Transmission Date: 20150821
  Serious: Yes (Other)
  Sender: FDA-Public Use
  Company Number: PHHY2015JP002852

PATIENT
  Age: 74 Year
  Sex: Female
  Weight: 45 kg

DRUGS (5)
  1. EXELON PATCH [Suspect]
     Active Substance: RIVASTIGMINE
     Dosage: 9.5 MG/24 HOURS (18 MG RIVASTIGMINE BASE)
     Route: 062
     Dates: start: 20141104, end: 20141225
  2. EXELON PATCH [Suspect]
     Active Substance: RIVASTIGMINE
     Dosage: 4.6 MG/24 HOURS (9 MG RIVASTIGMINE BASE)
     Route: 062
     Dates: start: 201409
  3. EXELON PATCH [Suspect]
     Active Substance: RIVASTIGMINE
     Dosage: UNK
  4. EXELON PATCH [Suspect]
     Active Substance: RIVASTIGMINE
     Indication: DEMENTIA ALZHEIMER^S TYPE
     Dosage: 1.9 MG/24 HOURS (4.5 MG RIVASTIGMINE BASE)
     Route: 062
     Dates: start: 20140901
  5. EXELON PATCH [Suspect]
     Active Substance: RIVASTIGMINE
     Dosage: 6.9 MG/24 HOURS (13.5 MG RIVASTIGMINE BASE)
     Route: 062
     Dates: start: 201410, end: 20141103

REACTIONS (6)
  - Tachypnoea [Recovered/Resolved]
  - Blood alkaline phosphatase increased [Unknown]
  - Chills [Recovered/Resolved]
  - Tremor [Recovered/Resolved]
  - Blood cholinesterase decreased [Recovered/Resolved]
  - Decreased appetite [Recovered/Resolved]

NARRATIVE: CASE EVENT DATE: 20141126
